FAERS Safety Report 10771118 (Version 1)
Quarter: 2015Q1

REPORT INFORMATION
  Report Type: Spontaneous
  Country: US (occurrence: US)
  Receive Date: 20150206
  Receipt Date: 20150206
  Transmission Date: 20150721
  Serious: Yes (Other)
  Sender: FDA-Public Use
  Company Number: US-GLAXOSMITHKLINE-A1072382A

PATIENT
  Sex: Female

DRUGS (1)
  1. LAMICTAL [Suspect]
     Active Substance: LAMOTRIGINE
     Indication: SEIZURE
     Route: 048
     Dates: start: 20131017

REACTIONS (4)
  - Headache [Not Recovered/Not Resolved]
  - Memory impairment [Unknown]
  - Seizure [Unknown]
  - Drug dose omission [Not Recovered/Not Resolved]
